FAERS Safety Report 12740093 (Version 3)
Quarter: 2016Q4

REPORT INFORMATION
  Report Type: Spontaneous
  Country: US (occurrence: US)
  Receive Date: 20160913
  Receipt Date: 20161103
  Transmission Date: 20170207
  Serious: Yes (Hospitalization, Other)
  Sender: FDA-Public Use
  Company Number: US-GILEAD-2016-0231791

PATIENT
  Age: 58 Year
  Sex: Male
  Weight: 102.95 kg

DRUGS (9)
  1. VALTREX [Concomitant]
     Active Substance: VALACYCLOVIR HYDROCHLORIDE
  2. LEVEMIR [Concomitant]
     Active Substance: INSULIN DETEMIR
  3. COLCHICINE. [Concomitant]
     Active Substance: COLCHICINE
  4. LISINOPRIL. [Concomitant]
     Active Substance: LISINOPRIL
  5. XIFAXAN [Concomitant]
     Active Substance: RIFAXIMIN
  6. FOLIC ACID. [Concomitant]
     Active Substance: FOLIC ACID
  7. HARVONI [Suspect]
     Active Substance: LEDIPASVIR\SOFOSBUVIR
     Indication: HEPATITIS C
     Dosage: 1 DF, UNK
     Route: 048
     Dates: start: 20160817
  8. NOVOLOG [Concomitant]
     Active Substance: INSULIN ASPART
  9. VANCOMYCIN [Concomitant]
     Active Substance: VANCOMYCIN
     Route: 042

REACTIONS (3)
  - Cellulitis [Recovered/Resolved]
  - Rash [Unknown]
  - Abscess limb [Recovered/Resolved]

NARRATIVE: CASE EVENT DATE: 20160830
